FAERS Safety Report 20577549 (Version 3)
Quarter: 2023Q1

REPORT INFORMATION
  Report Type: Spontaneous
  Country: US (occurrence: US)
  Receive Date: 20220310
  Receipt Date: 20230328
  Transmission Date: 20230418
  Serious: Yes (Other)
  Sender: FDA-Public Use
  Company Number: US-ASTELLAS-2022US008707

PATIENT
  Sex: Male

DRUGS (3)
  1. XTANDI [Suspect]
     Active Substance: ENZALUTAMIDE
     Indication: Product used for unknown indication
     Dosage: UNK, UNKNOWN FREQ.
     Route: 065
  2. ELIGARD [Suspect]
     Active Substance: LEUPROLIDE ACETATE
     Indication: Product used for unknown indication
     Dosage: UNK UNK, UNKNOWN FREQ.
     Route: 065
  3. DEGARELIX [Suspect]
     Active Substance: DEGARELIX
     Indication: Product used for unknown indication
     Dosage: UNK UNK, UNKNOWN FREQ.
     Route: 065

REACTIONS (18)
  - Ulcer haemorrhage [Recovered/Resolved]
  - Anal haemorrhage [Recovered/Resolved]
  - Weight increased [Recovered/Resolved]
  - Constipation [Recovered/Resolved]
  - Muscle spasms [Recovered/Resolved]
  - Gingivitis [Recovered/Resolved]
  - Pruritus [Recovered/Resolved]
  - Herpes zoster [Recovered/Resolved]
  - Cough [Recovered/Resolved]
  - Nocturia [Recovered/Resolved]
  - Abnormal dreams [Recovered/Resolved]
  - Sleep disorder [Recovered/Resolved]
  - Fatigue [Recovered/Resolved]
  - Gait inability [Recovered/Resolved]
  - Weight decreased [Unknown]
  - Limb discomfort [Unknown]
  - Testicular disorder [Unknown]
  - Joint swelling [Unknown]
